FAERS Safety Report 13531185 (Version 1)
Quarter: 2017Q2

REPORT INFORMATION
  Report Type: Spontaneous
  Country: US (occurrence: US)
  Receive Date: 20170510
  Receipt Date: 20170510
  Transmission Date: 20170830
  Serious: Yes (Other)
  Sender: FDA-Public Use
  Company Number: US-TEVA-765639ACC

PATIENT
  Age: 85 Year
  Sex: Male

DRUGS (3)
  1. BACLOFEN. [Suspect]
     Active Substance: BACLOFEN
     Indication: SOCIAL ANXIETY DISORDER
     Dosage: 60 MILLIGRAM DAILY;
  2. BACLOFEN. [Suspect]
     Active Substance: BACLOFEN
     Dosage: 5 MG
  3. BACLOFEN. [Suspect]
     Active Substance: BACLOFEN
     Indication: BACK PAIN
     Dosage: 20 MILLIGRAM DAILY;

REACTIONS (7)
  - Tremor [Unknown]
  - Product use in unapproved indication [Unknown]
  - Chest pain [Unknown]
  - Balance disorder [Unknown]
  - Memory impairment [Unknown]
  - Atrial fibrillation [Unknown]
  - Therapeutic response unexpected [Unknown]
